FAERS Safety Report 8415950-9 (Version None)
Quarter: 2012Q2

REPORT INFORMATION
  Report Type: 
  Country: None (occurrence: None)
  Receive Date: 20120530
  Receipt Date: 20120515
  Transmission Date: 20120825
  Serious: Yes (Other)
  Sender: FDA-Public Use
  Company Number: FK201201412

PATIENT
  Sex: Female

DRUGS (2)
  1. EPIRUBICIN [Suspect]
     Indication: BREAST CANCER
     Dosage: 75 MG/M2, 24-34 WEEKS' GESTATION
  2. CYCLOPHOSPHAMIDE [Suspect]
     Indication: BREAST CANCER
     Dosage: 600 MG (M2, 34 WEEKS' GESTATION

REACTIONS (10)
  - BLOOD CREATINE PHOSPHOKINASE MB ABNORMAL [None]
  - ELECTROCARDIOGRAM QT PROLONGED [None]
  - PREMATURE BABY [None]
  - CARDIAC DISORDER [None]
  - VENTRICULAR HYPOKINESIA [None]
  - DIASTOLIC DYSFUNCTION [None]
  - FOETAL EXPOSURE DURING PREGNANCY [None]
  - CAESAREAN SECTION [None]
  - TROPONIN INCREASED [None]
  - MYOGLOBIN BLOOD INCREASED [None]
